FAERS Safety Report 4902971-3 (Version None)
Quarter: 2006Q1

REPORT INFORMATION
  Report Type: 
  Country: None (occurrence: None)
  Receive Date: 20060207
  Receipt Date: 20060105
  Transmission Date: 20060701
  Serious: Yes (Hospitalization)
  Sender: FDA-Public Use
  Company Number: CN-MERCK-0601CHN00009

PATIENT
  Age: 74 Year
  Sex: Female

DRUGS (1)
  1. VIOXX [Suspect]
     Indication: ANALGESIC EFFECT
     Route: 048
     Dates: start: 20030101

REACTIONS (2)
  - CARDIAC DISORDER [None]
  - CORONARY ARTERY DISEASE [None]
